FAERS Safety Report 5580034-4 (Version None)
Quarter: 2008Q1

REPORT INFORMATION
  Report Type: 
  Country: None (occurrence: None)
  Receive Date: 20080103
  Receipt Date: 20071226
  Transmission Date: 20080703
  Serious: Yes (Hospitalization)
  Sender: FDA-Public Use
  Company Number: US-AVENTIS-200715084GDDC

PATIENT
  Age: 55 Year
  Sex: Male
  Weight: 140 kg

DRUGS (13)
  1. TAXOTERE [Suspect]
     Indication: HYPOPHARYNGEAL CANCER
     Route: 042
     Dates: start: 20070529, end: 20070529
  2. HYDREA [Suspect]
     Indication: HYPOPHARYNGEAL CANCER
     Route: 048
     Dates: start: 20070528, end: 20070602
  3. FLUOROURACIL [Suspect]
     Indication: HYPOPHARYNGEAL CANCER
     Route: 042
     Dates: start: 20070528, end: 20070602
  4. RADIATION THERAPY [Suspect]
     Indication: HYPOPHARYNGEAL CANCER
     Dosage: DOSE: UNK
  5. DIFLUCAN [Concomitant]
  6. DILTIAZEM [Concomitant]
  7. COZAAR [Concomitant]
  8. REGLAN                             /00041901/ [Concomitant]
  9. COLACE [Concomitant]
  10. ATIVAN [Concomitant]
     Dosage: DOSE: 0.521 Q6H
  11. COMPAZINE [Concomitant]
     Dosage: DOSE: 10 Q6H
  12. MORPHINE SULFATE [Concomitant]
     Dosage: DOSE: 15-30 Q3H
  13. FENTANYL TRANSDERMAL SYSTEM [Concomitant]
     Dosage: DOSE: 50 MCG

REACTIONS (1)
  - HYPOXIA [None]
